FAERS Safety Report 8557203-4 (Version None)
Quarter: 2012Q3

REPORT INFORMATION
  Report Type: 
  Country: None (occurrence: None)
  Receive Date: 20120801
  Receipt Date: 20120726
  Transmission Date: 20120928
  Serious: Yes (Hospitalization)
  Sender: FDA-Public Use
  Company Number: PHHY2012CA065017

PATIENT
  Age: 58 Year
  Sex: Male

DRUGS (11)
  1. ESCITALOPRAM [Concomitant]
  2. BISOPROLOL FUMARATE [Concomitant]
  3. LANTUS [Concomitant]
     Route: 058
  4. WELLBUTRIN [Concomitant]
  5. INSULIN [Concomitant]
  6. SEROQUEL [Concomitant]
  7. ASPIRIN [Concomitant]
  8. PERINDOPRIL ERBUMINE [Concomitant]
  9. VITAMIN D [Concomitant]
  10. RASILEZ [Suspect]
     Dosage: 150 MG, QD
  11. CENTRUM [Concomitant]

REACTIONS (1)
  - CARDIAC FAILURE CONGESTIVE [None]
